FAERS Safety Report 9316371 (Version 1)
Quarter: 2013Q2

REPORT INFORMATION
  Report Type: Spontaneous
  Country: US (occurrence: None)
  Receive Date: 20130528
  Receipt Date: 20130528
  Transmission Date: 20140414
  Serious: Yes (Other)
  Sender: FDA-Public Use
  Company Number: None

PATIENT
  Age: 64 Year
  Sex: Female
  Weight: 56.25 kg

DRUGS (9)
  1. ZALTRAP [Suspect]
     Indication: COLON CANCER STAGE IV
     Dosage: 223MG-4MG/KG- Q 14 DAYS
     Route: 041
     Dates: start: 20130223
  2. CHEMOTHERAPY AND SUPPORTIVE MEDICATIONS [Concomitant]
  3. CAMPTOSAR [Concomitant]
  4. LEUCOVORIN CALCIUM [Concomitant]
  5. FLUOROURACIL [Concomitant]
  6. ATRIOPINE [Concomitant]
  7. DECADRON [Concomitant]
  8. PALONOSETRON [Concomitant]
  9. EMEND [Concomitant]

REACTIONS (3)
  - Dysphonia [None]
  - Colon cancer recurrent [None]
  - Metastases to peritoneum [None]
